FAERS Safety Report 4286218-X (Version None)
Quarter: 2004Q1

REPORT INFORMATION
  Report Type: 
  Country: None (occurrence: None)
  Receive Date: 20040114
  Receipt Date: 20031031
  Transmission Date: 20041129
  Serious: No
  Sender: FDA-Public Use
  Company Number: 350694

PATIENT
  Age: 19 Year
  Sex: Female

DRUGS (2)
  1. ROCEPHIN [Suspect]
     Indication: LYME DISEASE
     Dosage: 2 GRAM 2 PER DAY
     Dates: start: 19980615
  2. PROBENECID [Concomitant]

REACTIONS (1)
  - CHOLELITHIASIS [None]
